FAERS Safety Report 10619716 (Version 3)
Quarter: 2015Q2

REPORT INFORMATION
  Report Type: Report from Study
  Country: US (occurrence: US)
  Receive Date: 20141202
  Receipt Date: 20150527
  Transmission Date: 20150821
  Serious: Yes (Other)
  Sender: FDA-Public Use
  Company Number: US-SA-2014SA038553

PATIENT
  Age: 34 Year
  Sex: Female

DRUGS (1)
  1. AUBAGIO [Suspect]
     Active Substance: TERIFLUNOMIDE
     Indication: MULTIPLE SCLEROSIS
     Route: 048
     Dates: start: 20140320

REACTIONS (15)
  - Laryngitis [Unknown]
  - Pain [Unknown]
  - Memory impairment [Recovering/Resolving]
  - Feeling abnormal [Unknown]
  - Muscle spasms [Recovering/Resolving]
  - Diarrhoea [Recovering/Resolving]
  - Headache [Recovering/Resolving]
  - Weight increased [Unknown]
  - Nausea [Not Recovered/Not Resolved]
  - Sinusitis [Unknown]
  - Vomiting [Recovering/Resolving]
  - Migraine [Unknown]
  - Alopecia [Unknown]
  - Endometriosis [Unknown]
  - Fatigue [Unknown]

NARRATIVE: CASE EVENT DATE: 20140321
